FAERS Safety Report 15190071 (Version 1)
Quarter: 2018Q3

REPORT INFORMATION
  Report Type: Spontaneous
  Country: US (occurrence: US)
  Receive Date: 20180724
  Receipt Date: 20180724
  Transmission Date: 20181010
  Serious: Yes (Hospitalization, Other)
  Sender: FDA-Public Use
  Company Number: US-ELI_LILLY_AND_COMPANY-US201807006453

PATIENT
  Age: 67 Year
  Sex: Female

DRUGS (8)
  1. RISPERIDONE. [Suspect]
     Active Substance: RISPERIDONE
     Indication: PSYCHOTIC DISORDER
     Dosage: 0.5 MG, BID
     Route: 065
  2. LORAZEPAM. [Concomitant]
     Active Substance: LORAZEPAM
     Indication: RESTLESSNESS
  3. TRIHEXYPHENIDYL [Concomitant]
     Active Substance: TRIHEXYPHENIDYL
     Indication: PARKINSON^S DISEASE
     Dosage: 3 MG, DAILY
     Route: 065
  4. FLUOXETINE HYDROCHLORIDE. [Suspect]
     Active Substance: FLUOXETINE HYDROCHLORIDE
     Indication: DEPRESSION
     Dosage: 20 MG, DAILY
     Route: 065
  5. HALOPERIDOL. [Interacting]
     Active Substance: HALOPERIDOL
     Indication: RESTLESSNESS
  6. HALOPERIDOL. [Interacting]
     Active Substance: HALOPERIDOL
     Indication: AGITATION
     Dosage: 2 MG TO 4 MG DAILY
     Route: 065
  7. SELEGILINE [Interacting]
     Active Substance: SELEGILINE
     Indication: PARKINSON^S DISEASE
     Dosage: 10 MG, DAILY
     Route: 065
  8. LORAZEPAM. [Concomitant]
     Active Substance: LORAZEPAM
     Indication: AGITATION
     Dosage: 2 MG, DAILY
     Route: 065

REACTIONS (7)
  - Sedation [Recovered/Resolved]
  - Parkinson^s disease [Recovered/Resolved]
  - Dementia [Unknown]
  - Serotonin syndrome [Recovered/Resolved]
  - Drug interaction [Recovered/Resolved]
  - Asymptomatic bacteriuria [Recovered/Resolved]
  - Psychotic disorder [Recovered/Resolved]
